FAERS Safety Report 8924051 (Version 1)
Quarter: 2012Q4

REPORT INFORMATION
  Report Type: Spontaneous
  Country: BG (occurrence: None)
  Receive Date: 20121116
  Receipt Date: 20121116
  Transmission Date: 20130627
  Serious: Yes (Other)
  Sender: FDA-Public Use
  Company Number: VAL_00988_2012

PATIENT
  Sex: Female

DRUGS (1)
  1. BROMOCRIPTINE [Suspect]
     Indication: PROLACTINOMA
     Dosage: (cumulative dose of 2600 mg for 240 months)

REACTIONS (4)
  - Mitral valve sclerosis [None]
  - Aortic valve incompetence [None]
  - Aortic valve sclerosis [None]
  - Tricuspid valve sclerosis [None]
